FAERS Safety Report 23462722 (Version 1)
Quarter: 2024Q1

REPORT INFORMATION
  Report Type: Spontaneous
  Country: US (occurrence: None)
  Receive Date: 20240131
  Receipt Date: 20240131
  Transmission Date: 20240409
  Serious: Yes (Hospitalization)
  Sender: FDA-Public Use
  Company Number: None

PATIENT
  Sex: Female

DRUGS (1)
  1. IBRANCE [Suspect]
     Active Substance: PALBOCICLIB
     Indication: Cervix carcinoma
     Dosage: 100MG ONCE DALY BY MOUTH
     Route: 048
     Dates: start: 202310

REACTIONS (1)
  - Hospitalisation [None]
